FAERS Safety Report 6638142-2 (Version None)
Quarter: 2010Q1

REPORT INFORMATION
  Report Type: 
  Country: None (occurrence: None)
  Receive Date: 20100301
  Receipt Date: 20090914
  Transmission Date: 20100710
  Serious: Yes (Other)
  Sender: FDA-Public Use
  Company Number: ALA_00360_2009

PATIENT
  Sex: Male

DRUGS (6)
  1. REGLAN [Suspect]
     Indication: GASTROOESOPHAGEAL REFLUX DISEASE
     Dosage: DF ORAL
     Route: 048
     Dates: start: 19680101, end: 19720101
  2. REGLAN [Suspect]
     Indication: DIARRHOEA
     Dosage: DF INTRAVENOUS
     Route: 042
     Dates: start: 20090201, end: 20090201
  3. REGLAN [Suspect]
     Indication: FOOD POISONING
     Dosage: DF INTRAVENOUS
     Route: 042
     Dates: start: 20090201, end: 20090201
  4. REGLAN [Suspect]
     Indication: VOMITING
     Dosage: DF INTRAVENOUS
     Route: 042
     Dates: start: 20090201, end: 20090201
  5. OMEPRAZOLE [Concomitant]
  6. SUCRALFATE [Concomitant]

REACTIONS (1)
  - TARDIVE DYSKINESIA [None]
